FAERS Safety Report 18262914 (Version 1)
Quarter: 2020Q3

REPORT INFORMATION
  Report Type: Spontaneous
  Country: US (occurrence: US)
  Receive Date: 20200914
  Receipt Date: 20200914
  Transmission Date: 20201103
  Serious: Yes (Death, Hospitalization)
  Sender: FDA-Public Use
  Company Number: US-CADILA HEALTHCARE LIMITED-US-ZYDUS-055452

PATIENT

DRUGS (3)
  1. OXYCODONE HYDROCHLORIDE. [Suspect]
     Active Substance: OXYCODONE HYDROCHLORIDE
     Dosage: UNK
     Route: 054
  2. OXYCODONE HYDROCHLORIDE. [Suspect]
     Active Substance: OXYCODONE HYDROCHLORIDE
     Indication: PANCREATITIS CHRONIC
     Dosage: UNK (5?10 MILLIGRAMS OF OXYCODONE EVERY 4 HOURS)
     Route: 065
  3. HEROIN [Concomitant]
     Active Substance: DIAMORPHINE
     Indication: PANCREATITIS CHRONIC
     Dosage: UNK (UNKNOWN AMOUNT OF HEROIN APPROXIMATELY)

REACTIONS (3)
  - Depressed level of consciousness [Unknown]
  - Unresponsive to stimuli [Unknown]
  - Intentional product use issue [Fatal]
